FAERS Safety Report 9044137 (Version 1)
Quarter: 2013Q1

REPORT INFORMATION
  Report Type: Report from Study
  Country: US (occurrence: US)
  Receive Date: 20130130
  Receipt Date: 20130130
  Transmission Date: 20140127
  Serious: No
  Sender: FDA-Public Use
  Company Number: US-ABBOTT-12P-163-0934210-00

PATIENT
  Age: 54 None
  Sex: Female

DRUGS (6)
  1. HUMIRA 40 MG/0.8 ML PEN [Suspect]
     Indication: RHEUMATOID ARTHRITIS
     Route: 058
     Dates: start: 201205
  2. CENTRUM MULTIVITAMIN [Concomitant]
     Indication: PRODUCT USED FOR UNKNOWN INDICATION
     Dosage: TAB DAILY
  3. METHOTREXATE [Concomitant]
     Indication: RHEUMATOID ARTHRITIS
     Dosage: 2.5MG TAB - TAKE 25MG WEEKLY
  4. FOLIC ACID [Concomitant]
     Indication: SUPPLEMENTATION THERAPY
     Dosage: 1MG DAILY
  5. LEVOTHYROXINE [Concomitant]
     Indication: THYROID THERAPY
     Dosage: 88MCG TABLET DAILY
  6. CVS NAPROXEN SOD [Concomitant]
     Indication: ARTHRALGIA

REACTIONS (5)
  - Injection site pain [Unknown]
  - Injection site bruising [Unknown]
  - Device malfunction [Unknown]
  - Injection site bruising [Recovered/Resolved]
  - Incorrect dose administered [Unknown]
